FAERS Safety Report 9513898 (Version 1)
Quarter: 2013Q3

REPORT INFORMATION
  Report Type: Spontaneous
  Country: US (occurrence: US)
  Receive Date: 20130910
  Receipt Date: 20130910
  Transmission Date: 20140515
  Serious: Yes (Death)
  Sender: FDA-Public Use
  Company Number: US-PFIZER INC-2013258399

PATIENT
  Sex: Male

DRUGS (3)
  1. ALDACTONE [Suspect]
     Dosage: UNK
  2. NEURONTIN [Suspect]
     Dosage: 400 MG, UNK
  3. ZOLOFT [Suspect]
     Dosage: 100 MG, UNK

REACTIONS (1)
  - Death [Fatal]
